FAERS Safety Report 7528133-1 (Version None)
Quarter: 2011Q2

REPORT INFORMATION
  Report Type: 
  Country: None (occurrence: None)
  Receive Date: 20110607
  Receipt Date: 20100521
  Transmission Date: 20111010
  Serious: No
  Sender: FDA-Public Use
  Company Number: US-ASTRAZENECA-2010SE23738

PATIENT
  Age: 68 Year
  Sex: Female

DRUGS (5)
  1. PRILOSEC [Suspect]
     Dosage: DAILY
     Route: 048
     Dates: start: 20100101
  2. NEURONTIN [Concomitant]
  3. PRILOSEC [Suspect]
     Indication: GASTROOESOPHAGEAL REFLUX DISEASE
     Dosage: DAILY
     Route: 048
     Dates: start: 20090101, end: 20090101
  4. PRILOSEC [Suspect]
     Indication: GASTRIC ULCER
     Dosage: DAILY
     Route: 048
     Dates: start: 20090101, end: 20090101
  5. PRILOSEC [Suspect]
     Dosage: DAILY
     Route: 048
     Dates: start: 20100101

REACTIONS (3)
  - FLATULENCE [None]
  - OSTEOPENIA [None]
  - TOOTHACHE [None]
